FAERS Safety Report 12120444 (Version 1)
Quarter: 2016Q1

REPORT INFORMATION
  Report Type: Spontaneous
  Country: US (occurrence: US)
  Receive Date: 20160226
  Receipt Date: 20160226
  Transmission Date: 20160526
  Serious: Yes (Other)
  Sender: FDA-Public Use
  Company Number: US-ELI_LILLY_AND_COMPANY-US201602006461

PATIENT
  Sex: Female

DRUGS (2)
  1. ZYPREXA [Suspect]
     Active Substance: OLANZAPINE
     Indication: WEIGHT INCREASED
  2. ZYPREXA [Suspect]
     Active Substance: OLANZAPINE
     Indication: ANXIETY
     Dosage: 15 MG, UNKNOWN
     Route: 065
     Dates: start: 2007

REACTIONS (8)
  - Trismus [Unknown]
  - Teething [Unknown]
  - Hypersensitivity [Unknown]
  - Off label use [Recovered/Resolved]
  - Parkinsonism [Unknown]
  - Eating disorder [Unknown]
  - Tardive dyskinesia [Unknown]
  - Tremor [Unknown]

NARRATIVE: CASE EVENT DATE: 2007
